FAERS Safety Report 11049438 (Version 1)
Quarter: 2015Q2

REPORT INFORMATION
  Report Type: Spontaneous
  Country: US (occurrence: US)
  Receive Date: 20150420
  Receipt Date: 20150420
  Transmission Date: 20150821
  Serious: Yes (Other)
  Sender: FDA-Public Use
  Company Number: PHEH2015US007137

PATIENT
  Sex: Female
  Weight: 12.25 kg

DRUGS (3)
  1. ILARIS [Suspect]
     Active Substance: CANAKINUMAB
     Indication: CRYOPYRIN ASSOCIATED PERIODIC SYNDROME
     Dosage: 50 MG, UNK
     Route: 058
     Dates: start: 20150412
  2. ILARIS [Suspect]
     Active Substance: CANAKINUMAB
     Indication: COLD URTICARIA
     Dosage: 50 MG, UNK
     Route: 058
     Dates: start: 20131010
  3. ILARIS [Suspect]
     Active Substance: CANAKINUMAB
     Indication: URTICARIA THERMAL
     Dosage: 50 MG, UNK
     Route: 058
     Dates: start: 20150113

REACTIONS (3)
  - Red blood cell count decreased [Recovering/Resolving]
  - Blood iron decreased [Recovering/Resolving]
  - Product use issue [Unknown]
